FAERS Safety Report 13580541 (Version 1)
Quarter: 2017Q2

REPORT INFORMATION
  Report Type: Spontaneous
  Country: DE (occurrence: DE)
  Receive Date: 20170525
  Receipt Date: 20170525
  Transmission Date: 20170830
  Serious: Yes (Hospitalization, Other)
  Sender: FDA-Public Use
  Company Number: DE-TEVA-770811GER

PATIENT
  Sex: Male

DRUGS (1)
  1. NITROFURANTOIN-RATIOPHARM 100 MG RETARDKAPSELN [Suspect]
     Active Substance: NITROFURANTOIN
     Dosage: 200 MILLIGRAM DAILY;
     Route: 048
     Dates: start: 2008, end: 2017

REACTIONS (1)
  - Traumatic lung injury [Unknown]
